FAERS Safety Report 8421977-3 (Version None)
Quarter: 2012Q2

REPORT INFORMATION
  Report Type: 
  Country: None (occurrence: None)
  Receive Date: 20120605
  Receipt Date: 20120605
  Transmission Date: 20120825
  Serious: No
  Sender: FDA-Public Use
  Company Number: None

PATIENT
  Age: 71 Year
  Sex: Female
  Weight: 62.1428 kg

DRUGS (1)
  1. TIKOSYN [Suspect]
     Dosage: 1 CAPSULE

REACTIONS (3)
  - MALAISE [None]
  - COUGH [None]
  - METAMORPHOPSIA [None]
